FAERS Safety Report 5907049-8 (Version None)
Quarter: 2008Q4

REPORT INFORMATION
  Report Type: 
  Country: None (occurrence: None)
  Receive Date: 20081002
  Receipt Date: 20081002
  Transmission Date: 20090506
  Serious: Yes (Other)
  Sender: FDA-Public Use
  Company Number: None

PATIENT
  Age: 61 Year
  Sex: Female

DRUGS (1)
  1. GADOBENATE DIMEGLUMINE [Suspect]
     Indication: NUCLEAR MAGNETIC RESONANCE IMAGING
     Dosage: 7 ML IV
     Route: 042
     Dates: start: 20081001, end: 20081001

REACTIONS (3)
  - NONSPECIFIC REACTION [None]
  - SNEEZING [None]
  - VOMITING [None]
